FAERS Safety Report 16896319 (Version 1)
Quarter: 2019Q4

REPORT INFORMATION
  Report Type: Spontaneous
  Country: US (occurrence: US)
  Receive Date: 20191008
  Receipt Date: 20191008
  Transmission Date: 20200122
  Serious: No
  Sender: FDA-Public Use
  Company Number: US-INDIVIOR US-INDV-114119-2018

PATIENT
  Age: 42 Year
  Sex: Female

DRUGS (1)
  1. SUBOXONE [Suspect]
     Active Substance: BUPRENORPHINE HYDROCHLORIDE\NALOXONE HYDROCHLORIDE
     Indication: DRUG DEPENDENCE
     Dosage: 8 MG, TID
     Route: 060
     Dates: start: 2016, end: 20180910

REACTIONS (13)
  - Inappropriate schedule of product administration [Recovered/Resolved]
  - Post-traumatic neck syndrome [Not Recovered/Not Resolved]
  - Feeling abnormal [Unknown]
  - Nausea [Unknown]
  - Wrong technique in product usage process [Recovered/Resolved]
  - Road traffic accident [Recovered/Resolved]
  - Malaise [Unknown]
  - Drug withdrawal syndrome [Not Recovered/Not Resolved]
  - Musculoskeletal discomfort [Not Recovered/Not Resolved]
  - Intentional underdose [Recovered/Resolved]
  - Hyperhidrosis [Unknown]
  - Cold sweat [Unknown]
  - Pain [Not Recovered/Not Resolved]

NARRATIVE: CASE EVENT DATE: 2016
